FAERS Safety Report 19607574 (Version 3)
Quarter: 2021Q3

REPORT INFORMATION
  Report Type: Spontaneous
  Country: US (occurrence: US)
  Receive Date: 20210726
  Receipt Date: 20210923
  Transmission Date: 20211014
  Serious: Yes (Death, Other)
  Sender: FDA-Public Use
  Company Number: US-JNJFOC-20210749009

PATIENT
  Sex: Male

DRUGS (1)
  1. BALVERSA [Suspect]
     Active Substance: ERDAFITINIB
     Indication: PRODUCT USED FOR UNKNOWN INDICATION
     Dosage: LAST KNOWN DATE OF DRUG ADMINISTRATION: 15?DEC?2020
     Route: 048

REACTIONS (3)
  - Death [Fatal]
  - Coma [Unknown]
  - Drug ineffective [Unknown]
